FAERS Safety Report 6723786-X (Version None)
Quarter: 2010Q2

REPORT INFORMATION
  Report Type: 
  Country: None (occurrence: None)
  Receive Date: 20100513
  Receipt Date: 20100511
  Transmission Date: 20101027
  Serious: Yes (Other)
  Sender: FDA-Public Use
  Company Number: US-CEPHALON-2010002685

PATIENT
  Age: 48 Year
  Sex: Female

DRUGS (6)
  1. NUVIGIL [Suspect]
     Indication: SEDATION
     Route: 048
     Dates: start: 20100428
  2. KLONOPIN [Concomitant]
  3. MS CONTIN [Concomitant]
  4. PERCOCET [Concomitant]
  5. TRAZODONE [Concomitant]
  6. CYMBALTA [Concomitant]

REACTIONS (5)
  - ARTHRALGIA [None]
  - DYSPNOEA [None]
  - INTENTIONAL DRUG MISUSE [None]
  - OEDEMA PERIPHERAL [None]
  - STEVENS-JOHNSON SYNDROME [None]
